FAERS Safety Report 7370645-8 (Version None)
Quarter: 2011Q1

REPORT INFORMATION
  Report Type: 
  Country: None (occurrence: None)
  Receive Date: 20110323
  Receipt Date: 20110131
  Transmission Date: 20110831
  Serious: Yes (Other)
  Sender: FDA-Public Use
  Company Number: US-AMGEN-USASP2010009673

PATIENT
  Age: 37 Year
  Sex: Male

DRUGS (10)
  1. TYLENOL (CAPLET) [Concomitant]
  2. EPOGEN [Suspect]
     Dosage: 18000 IU, 3 TIMES/WK
  3. EMLA [Concomitant]
  4. SENSIPAR [Suspect]
     Indication: HYPERPARATHYROIDISM SECONDARY
  5. EPOGEN [Suspect]
     Dosage: 33000 IU, 3 TIMES/WK
  6. AMBIEN [Concomitant]
  7. EMLA [Concomitant]
  8. EPOGEN [Suspect]
     Indication: DIALYSIS
     Dosage: UNK UNK, Q3WK
     Dates: start: 20010622
  9. VENOFER [Concomitant]
  10. HECTOROL [Concomitant]

REACTIONS (12)
  - PLATELET COUNT DECREASED [None]
  - ACTIVATED PARTIAL THROMBOPLASTIN TIME PROLONGED [None]
  - HYPOPARATHYROIDISM [None]
  - THERAPEUTIC RESPONSE DECREASED [None]
  - DIARRHOEA [None]
  - NAUSEA [None]
  - DRUG SPECIFIC ANTIBODY PRESENT [None]
  - BRONCHITIS [None]
  - VOMITING [None]
  - WHITE BLOOD CELL COUNT DECREASED [None]
  - SYSTEMIC LUPUS ERYTHEMATOSUS [None]
  - ARTERIOVENOUS FISTULA THROMBOSIS [None]
